FAERS Safety Report 23700891 (Version 1)
Quarter: 2024Q2

REPORT INFORMATION
  Report Type: Other
  Country: US (occurrence: None)
  Receive Date: 20240403
  Receipt Date: 20240403
  Transmission Date: 20240716
  Serious: Yes (Other)
  Sender: FDA-Public Use
  Company Number: US-ROCHE-3532023

PATIENT
  Age: 46 Year
  Sex: Male
  Weight: 136.2 kg

DRUGS (2)
  1. OCREVUS [Suspect]
     Active Substance: OCRELIZUMAB
     Indication: Multiple sclerosis
     Route: 042
  2. OLMESARTAN MEDOXOMIL [Concomitant]
     Active Substance: OLMESARTAN MEDOXOMIL
     Route: 048

REACTIONS (6)
  - Vertigo [Unknown]
  - Vomiting [Unknown]
  - Deafness unilateral [Unknown]
  - Diplopia [Unknown]
  - JC polyomavirus test positive [Unknown]
  - Multiple sclerosis [Unknown]
